FAERS Safety Report 5024946-9 (Version None)
Quarter: 2006Q2

REPORT INFORMATION
  Report Type: 
  Country: None (occurrence: None)
  Receive Date: 20060607
  Receipt Date: 20060531
  Transmission Date: 20061013
  Serious: Yes (Death)
  Sender: FDA-Public Use
  Company Number: 430006E06ITA

PATIENT
  Age: 71 Year
  Sex: Male

DRUGS (5)
  1. NOVANTRONE [Suspect]
     Indication: ACUTE MYELOID LEUKAEMIA
     Dosage: INTRAVENOUS
     Route: 042
     Dates: start: 20060406, end: 20060410
  2. GEMTUZUMAB [Suspect]
     Indication: ACUTE MYELOID LEUKAEMIA
     Dosage: 10 MG, 1 IN 1 DAYS, INTRAVENOUS
     Route: 042
     Dates: start: 20060324, end: 20060324
  3. CYTARABINE [Suspect]
     Indication: ACUTE MYELOID LEUKAEMIA
     Dosage: 180 MG, 1 IN 1 DAYS, INTRAVENOUS
     Route: 042
     Dates: start: 20060406, end: 20060412
  4. ETOPOSIDE [Suspect]
     Indication: ACUTE MYELOID LEUKAEMIA
     Dosage: 180 MG, 1 IN 1 DAYS, INTRAVENOUS
     Route: 042
     Dates: start: 20060406, end: 20060408
  5. AMPHOTERICIN B [Concomitant]

REACTIONS (3)
  - ASPERGILLOSIS [None]
  - BONE MARROW FAILURE [None]
  - FUNGAL INFECTION [None]
